FAERS Safety Report 26127730 (Version 2)
Quarter: 2025Q4

REPORT INFORMATION
  Report Type: Spontaneous
  Country: US (occurrence: US)
  Receive Date: 20251206
  Receipt Date: 20251209
  Transmission Date: 20260117
  Serious: No
  Sender: SANOFI AVENTIS
  Company Number: US-SA-2025SA363989

PATIENT
  Age: 39 Year
  Sex: Male

DRUGS (1)
  1. DUPIXENT [Suspect]
     Active Substance: DUPILUMAB
     Dosage: 300 MG, BIW
     Route: 058

REACTIONS (1)
  - Inappropriate schedule of product administration [Unknown]
